FAERS Safety Report 9343701 (Version 11)
Quarter: 2014Q2

REPORT INFORMATION
  Report Type: Spontaneous
  Country: GB (occurrence: GB)
  Receive Date: 20130612
  Receipt Date: 20140513
  Transmission Date: 20141212
  Serious: Yes (Hospitalization, Other)
  Sender: FDA-Public Use
  Company Number: PHFR2013GB003325

PATIENT
  Age: 55 Year
  Sex: Male
  Weight: 89 kg

DRUGS (12)
  1. CLOZARIL [Suspect]
     Indication: SCHIZOPHRENIA
     Dosage: 500 MG, UNK
     Route: 048
     Dates: start: 20070126
  2. CLOZARIL [Suspect]
     Dosage: 500 MG, UNK
     Route: 048
  3. CLOZARIL [Suspect]
     Dosage: UNK
     Route: 048
     Dates: start: 20140127
  4. CLOZARIL [Suspect]
     Dosage: UNK, TITRATION
     Route: 048
     Dates: start: 201403, end: 201403
  5. ARIPIPRAZOLE [Concomitant]
     Dosage: 15 ML, UNK
     Route: 048
  6. HYOSCINE [Concomitant]
     Dosage: 300 MG, UNK
     Route: 048
  7. LACTULOSE [Concomitant]
     Dosage: 10 ML, UNK
     Route: 048
  8. DEPAKOTE [Concomitant]
     Indication: AFFECTIVE DISORDER
     Dosage: 3 MG, UNK
     Route: 048
  9. DEPAKOTE [Concomitant]
     Dosage: 1500 MG, DAILY (1G NOCTE, 500 MG MANE)
     Route: 048
     Dates: start: 201404
  10. AMISULPRIDE [Concomitant]
     Indication: SCHIZOPHRENIA
     Dosage: 200 MG, DAILY
     Route: 048
     Dates: start: 20140402
  11. ASPIRIN [Concomitant]
     Indication: BLOOD DISORDER
     Dosage: UNK UKN, UNK
     Route: 048
     Dates: start: 20140402
  12. BISACODYL [Concomitant]
     Dosage: 5 MG, NOCTE
     Route: 048
     Dates: start: 20140402

REACTIONS (9)
  - Pneumonia [Unknown]
  - Lower respiratory tract infection [Recovered/Resolved]
  - Dyspnoea [Recovered/Resolved]
  - Malaise [Recovered/Resolved]
  - Transient ischaemic attack [Recovered/Resolved]
  - Posture abnormal [Unknown]
  - Platelet count decreased [Not Recovered/Not Resolved]
  - White blood cell count decreased [Recovered/Resolved with Sequelae]
  - Neutrophil count decreased [Recovered/Resolved]
